FAERS Safety Report 5963204-2 (Version None)
Quarter: 2008Q4

REPORT INFORMATION
  Report Type: 
  Country: None (occurrence: None)
  Receive Date: 20081120
  Receipt Date: 20081120
  Transmission Date: 20090506
  Serious: No
  Sender: FDA-Public Use
  Company Number: None

PATIENT
  Age: 55 Year
  Sex: Male
  Weight: 60.33 kg

DRUGS (1)
  1. NAPROXEN [Suspect]
     Indication: PAIN
     Dosage: 250 MG BID PO
     Route: 048
     Dates: start: 20071120, end: 20081120

REACTIONS (2)
  - INSOMNIA [None]
  - RESTLESSNESS [None]
